FAERS Safety Report 7449784-9 (Version None)
Quarter: 2011Q2

REPORT INFORMATION
  Report Type: 
  Country: None (occurrence: None)
  Receive Date: 20110421
  Receipt Date: 20110418
  Transmission Date: 20111010
  Serious: Yes (Hospitalization)
  Sender: FDA-Public Use
  Company Number: 2010SP002877

PATIENT
  Age: 80 Year
  Sex: Female
  Weight: 124.7 kg

DRUGS (9)
  1. ANALGESICS [Concomitant]
  2. ALL OTHER THERAPEUTIC PRODUCTS [Concomitant]
  3. SINGULAIR [Concomitant]
  4. XOPENEX [Suspect]
     Indication: CHRONIC OBSTRUCTIVE PULMONARY DISEASE
     Dosage: 90 UG; Q1H; INHALATION, 90 UG; PRN; INHALATION
     Route: 055
  5. XOPENEX [Suspect]
     Indication: BRONCHITIS
     Dosage: 90 UG; Q1H; INHALATION, 90 UG; PRN; INHALATION
     Route: 055
  6. XOPENEX [Suspect]
     Indication: ASTHMA
     Dosage: 90 UG; Q1H; INHALATION, 90 UG; PRN; INHALATION
     Route: 055
  7. OTHER HAEMATOLOGICAL AGENTS [Concomitant]
  8. OXYGEN [Concomitant]
  9. ANXIOLYTICS [Concomitant]

REACTIONS (1)
  - LUNG INFECTION [None]
